FAERS Safety Report 25779725 (Version 2)
Quarter: 2025Q3

REPORT INFORMATION
  Report Type: Spontaneous
  Country: US (occurrence: US)
  Receive Date: 20250909
  Receipt Date: 20250922
  Transmission Date: 20251021
  Serious: Yes (Other)
  Sender: SAREPTA THERAPEUTICS
  Company Number: US-SAREPTA THERAPEUTICS INC.-SRP2025-006325

PATIENT
  Age: 3 Year
  Sex: Male

DRUGS (2)
  1. EXONDYS 51 [Suspect]
     Active Substance: ETEPLIRSEN
     Indication: Product used for unknown indication
     Route: 042
  2. EXONDYS 51 [Suspect]
     Active Substance: ETEPLIRSEN
     Route: 042

REACTIONS (4)
  - Blood creatine phosphokinase abnormal [Unknown]
  - Blood glucose decreased [Unknown]
  - Pseudohyperkalaemia [Recovered/Resolved]
  - Vomiting [Unknown]

NARRATIVE: CASE EVENT DATE: 20250806
